FAERS Safety Report 23279216 (Version 1)
Quarter: 2023Q4

REPORT INFORMATION
  Report Type: Spontaneous
  Country: NL (occurrence: NL)
  Receive Date: 20231210
  Receipt Date: 20231210
  Transmission Date: 20240109
  Serious: Yes (Life-Threatening, Hospitalization, Other)
  Sender: FDA-Public Use
  Company Number: NL-MYLANLABS-2010S1020498

PATIENT
  Age: 69 Year
  Sex: Male

DRUGS (1)
  1. ENALAPRIL [Suspect]
     Active Substance: ENALAPRIL
     Indication: Hypertension
     Dosage: UNKNOWN
     Route: 065

REACTIONS (4)
  - Angioedema [Unknown]
  - Respiratory failure [Unknown]
  - Swelling face [Unknown]
  - Tongue oedema [Unknown]
